FAERS Safety Report 9059609 (Version 1)
Quarter: 2013Q1

REPORT INFORMATION
  Report Type: Spontaneous
  Country: DE (occurrence: DE)
  Receive Date: 20130212
  Receipt Date: 20130212
  Transmission Date: 20140127
  Serious: Yes (Hospitalization, Other)
  Sender: FDA-Public Use
  Company Number: DE-PAR PHARMACEUTICAL, INC-2013SCPR005553

PATIENT
  Sex: 0

DRUGS (1)
  1. OLANZAPINE [Suspect]
     Indication: SCHIZOPHRENIA
     Dosage: 20 MG, UNKNOWN
     Route: 065
     Dates: start: 2011

REACTIONS (4)
  - Schizophrenia, catatonic type [Recovering/Resolving]
  - Stupor [Recovering/Resolving]
  - Pneumonia [Unknown]
  - Malnutrition [Unknown]
